FAERS Safety Report 13355097 (Version 1)
Quarter: 2017Q1

REPORT INFORMATION
  Report Type: Spontaneous
  Country: US (occurrence: US)
  Receive Date: 20170321
  Receipt Date: 20170321
  Transmission Date: 20170429
  Serious: Yes (Hospitalization)
  Sender: FDA-Public Use
  Company Number: US-SMITH AND NEPHEW, INC-2017SMT00158

PATIENT
  Age: 63 Year
  Sex: Male
  Weight: 116.1 kg

DRUGS (5)
  1. UNSPECIFIED STOMACH ULCER MEDICATION [Concomitant]
  2. ALLOPURINOL. [Concomitant]
     Active Substance: ALLOPURINOL
  3. LOPRESSOR [Concomitant]
     Active Substance: METOPROLOL TARTRATE
  4. LIPITOR [Concomitant]
     Active Substance: ATORVASTATIN CALCIUM
  5. REGRANEX [Suspect]
     Active Substance: BECAPLERMIN
     Indication: ULCER
     Dosage: UNK, 1X/DAY (USED ONCE A DAY AT NIGHT)
     Route: 061
     Dates: start: 20170301, end: 201703

REACTIONS (2)
  - Drug ineffective [Recovered/Resolved]
  - Arthritis infective [Unknown]

NARRATIVE: CASE EVENT DATE: 201703
